FAERS Safety Report 7319301-2 (Version None)
Quarter: 2011Q1

REPORT INFORMATION
  Report Type: 
  Country: None (occurrence: None)
  Receive Date: 20110228
  Receipt Date: 20100121
  Transmission Date: 20110831
  Serious: No
  Sender: FDA-Public Use
  Company Number: A0840740A

PATIENT
  Age: 46 Year
  Sex: Female

DRUGS (6)
  1. NEXIUM [Concomitant]
  2. LOVAZA [Concomitant]
  3. BUSPIRONE [Concomitant]
  4. LAMOTRIGINE [Suspect]
     Indication: DEPRESSION
     Dosage: 200MG PER DAY
     Route: 048
     Dates: start: 20090101
  5. DIAZEPAM [Concomitant]
  6. CELEXA [Concomitant]

REACTIONS (2)
  - ACNE [None]
  - DRUG INEFFECTIVE [None]
